FAERS Safety Report 8738501 (Version 3)
Quarter: 2012Q4

REPORT INFORMATION
  Report Type: 
  Country: US (occurrence: US)
  Receive Date: 20120823
  Receipt Date: 20121026
  Transmission Date: 20130627
  Serious: Yes (Other)
  Sender: FDA-Public Use
  Company Number: US-SANOFI-AVENTIS-2012SA058925

PATIENT
  Age: 61 Year
  Sex: Male

DRUGS (4)
  1. LANTUS SOLOSTAR [Suspect]
     Indication: TYPE II DIABETES MELLITUS
     Dosage: dose increased to 70 units after the heart surgery. Dose:70 unit(s)
     Route: 058
     Dates: start: 201202
  2. LANTUS SOLOSTAR [Suspect]
     Indication: TYPE II DIABETES MELLITUS
     Dosage: dose increased to 70 units after the heart surgery. Dose:50 unit(s)
     Route: 058
     Dates: start: 201201, end: 201202
  3. SOLOSTAR [Suspect]
     Indication: TYPE II DIABETES MELLITUS
     Dates: start: 201201
  4. SOLOSTAR [Suspect]
     Indication: TYPE II DIABETES MELLITUS
     Dates: start: 201201

REACTIONS (1)
  - Aortic valve replacement [Unknown]
